FAERS Safety Report 5896819-0 (Version None)
Quarter: 2008Q3

REPORT INFORMATION
  Report Type: 
  Country: None (occurrence: None)
  Receive Date: 20080924
  Receipt Date: 20071127
  Transmission Date: 20090109
  Serious: Yes (Hospitalization)
  Sender: FDA-Public Use
  Company Number: US-ASTRAZENECA-2007UW25332

PATIENT
  Age: 50 Year
  Sex: Male
  Weight: 104.3 kg

DRUGS (16)
  1. SEROQUEL [Suspect]
     Indication: BIPOLAR DISORDER
     Dosage: 200, 400, AND/OR 600 MG
     Route: 048
     Dates: start: 19980101, end: 20050101
  2. SEROQUEL [Suspect]
     Indication: BIPOLAR I DISORDER
     Dosage: 200, 400, AND/OR 600 MG
     Route: 048
     Dates: start: 19980101, end: 20050101
  3. RISPERDAL [Concomitant]
  4. ZYPREXA [Concomitant]
  5. WELLBUTRIN [Concomitant]
  6. EFFEXOR [Concomitant]
  7. LAMICTAL [Concomitant]
  8. LITHIUM CARBONATE [Concomitant]
  9. VICOPROFEN [Concomitant]
  10. LAMICTAL [Concomitant]
  11. FLUVOXAMINE MALEATE [Concomitant]
  12. AMBIEN [Concomitant]
  13. LEVOXYL [Concomitant]
  14. VIAGRA [Concomitant]
  15. CLONAZEPAM [Concomitant]
  16. GLYBURIDE MICRONIZE [Concomitant]

REACTIONS (8)
  - ALLERGY TO ARTHROPOD BITE [None]
  - BIPOLAR I DISORDER [None]
  - DIABETES MELLITUS [None]
  - JOINT INJURY [None]
  - LOCALISED INFECTION [None]
  - NEUROPATHY PERIPHERAL [None]
  - OBESITY [None]
  - SUICIDAL IDEATION [None]
